FAERS Safety Report 5339209-1 (Version None)
Quarter: 2007Q2

REPORT INFORMATION
  Report Type: 
  Country: None (occurrence: None)
  Receive Date: 20070330
  Receipt Date: 20060424
  Transmission Date: 20071010
  Serious: Yes (Hospitalization)
  Sender: FDA-Public Use
  Company Number: 2006AC00794

PATIENT
  Age: 46 Year
  Sex: Male

DRUGS (9)
  1. LISINOPRIL [Suspect]
     Dosage: STABLE DOSE FOR SEVERAL YEARS PRIOR TO EVENT
  2. COCAINE [Suspect]
  3. HYDROCHLOROTHIAZIDE [Suspect]
  4. HEROIN [Concomitant]
  5. ALCOHOL [Concomitant]
  6. ACETAMINOPHEN [Concomitant]
  7. GLYBURIDE [Concomitant]
  8. METHADONE HCL [Concomitant]
  9. CIPROFLOXACIN [Concomitant]

REACTIONS (1)
  - RENAL FAILURE ACUTE [None]
